FAERS Safety Report 8187363-9 (Version None)
Quarter: 2012Q1

REPORT INFORMATION
  Report Type: 
  Country: None (occurrence: None)
  Receive Date: 20120302
  Receipt Date: 20120222
  Transmission Date: 20120608
  Serious: Yes (Other)
  Sender: FDA-Public Use
  Company Number: 2012SP009935

PATIENT
  Age: 15 Year
  Sex: Female

DRUGS (1)
  1. NEXPLANON [Suspect]
     Indication: PRODUCT USED FOR UNKNOWN INDICATION
     Dates: start: 20120217

REACTIONS (3)
  - PSYCHOTIC BEHAVIOUR [None]
  - AGGRESSION [None]
  - VOMITING [None]
